FAERS Safety Report 8462139-3 (Version None)
Quarter: 2012Q2

REPORT INFORMATION
  Report Type: 
  Country: None (occurrence: None)
  Receive Date: 20120625
  Receipt Date: 20120614
  Transmission Date: 20120825
  Serious: No
  Sender: FDA-Public Use
  Company Number: JP-JNJFOC-20120501832

PATIENT
  Age: 64 Year
  Sex: Male

DRUGS (2)
  1. ITRACONAZOLE [Suspect]
     Indication: OESOPHAGEAL CANDIDIASIS
     Route: 048
     Dates: start: 20120419
  2. ITRACONAZOLE [Suspect]
     Dosage: 2 WEEK ITRACONAZOLE WAS COMPLETED
     Route: 048
     Dates: end: 20120101

REACTIONS (2)
  - INSOMNIA [None]
  - TINNITUS [None]
